FAERS Safety Report 9812551 (Version 2)
Quarter: 2014Q1

REPORT INFORMATION
  Report Type: Spontaneous
  Country: US (occurrence: US)
  Receive Date: 20140113
  Receipt Date: 20140113
  Transmission Date: 20141002
  Serious: Yes (Other)
  Sender: FDA-Public Use
  Company Number: US-ROCHE-1326950

PATIENT
  Age: 50 Year
  Sex: Male
  Weight: 96.2 kg

DRUGS (1)
  1. ZELBORAF [Suspect]
     Indication: MALIGNANT MELANOMA
     Route: 048
     Dates: start: 20130815, end: 20131226

REACTIONS (1)
  - Disease progression [Unknown]
